FAERS Safety Report 6164867-1 (Version None)
Quarter: 2009Q2

REPORT INFORMATION
  Report Type: 
  Country: None (occurrence: None)
  Receive Date: 20090423
  Receipt Date: 20090420
  Transmission Date: 20091009
  Serious: Yes (Life-Threatening, Other)
  Sender: FDA-Public Use
  Company Number: BR-ASTRAZENECA-2008UW17266

PATIENT
  Age: 96 Year
  Sex: Female
  Weight: 33 kg

DRUGS (4)
  1. ARIMIDEX [Suspect]
     Indication: BREAST CANCER
     Dosage: DAILY
     Route: 048
     Dates: start: 20071201, end: 20081231
  2. ARIMIDEX [Suspect]
     Route: 048
     Dates: start: 20090116
  3. PROLOPA [Concomitant]
     Indication: TREMOR
     Route: 048
     Dates: start: 20010101
  4. ARADOIS [Concomitant]
     Indication: HYPERTENSION
     Route: 048
     Dates: start: 20070101

REACTIONS (8)
  - ABDOMINAL PAIN UPPER [None]
  - BLOOD PRESSURE INCREASED [None]
  - CONSTIPATION [None]
  - HYPERTENSION [None]
  - MENTAL DISORDER [None]
  - OEDEMA PERIPHERAL [None]
  - PULMONARY OEDEMA [None]
  - WEIGHT DECREASED [None]
